FAERS Safety Report 10258582 (Version 1)
Quarter: 2014Q2

REPORT INFORMATION
  Report Type: Spontaneous
  Country: IT (occurrence: IT)
  Receive Date: 20140625
  Receipt Date: 20140625
  Transmission Date: 20141212
  Serious: Yes (Life-Threatening)
  Sender: FDA-Public Use
  Company Number: IT-MYLANLABS-2014S1014331

PATIENT
  Age: 72 Year
  Sex: Female
  Weight: 100 kg

DRUGS (4)
  1. FUROSEMIDE [Suspect]
     Indication: DIURETIC THERAPY
     Route: 048
  2. LORAZEPAM [Suspect]
     Indication: PRODUCT USED FOR UNKNOWN INDICATION
     Route: 048
     Dates: start: 20140601, end: 20140602
  3. COAPROVEL [Concomitant]
     Indication: HYPERTENSION
     Dosage: 300 MG /12.5 MG
     Route: 048
  4. ALMARYTM [Concomitant]
     Indication: ATRIAL FIBRILLATION
     Route: 048

REACTIONS (7)
  - Sedation [Recovered/Resolved]
  - Bronchospasm [Recovered/Resolved]
  - Dyspnoea [Recovered/Resolved]
  - Oxygen saturation decreased [Recovered/Resolved]
  - Respiratory failure [Recovered/Resolved]
  - Respiratory acidosis [Recovered/Resolved]
  - Product commingling [Recovered/Resolved]
